FAERS Safety Report 8822234 (Version 3)
Quarter: 2013Q4

REPORT INFORMATION
  Report Type: Spontaneous
  Country: US (occurrence: US)
  Receive Date: 20121003
  Receipt Date: 20131129
  Transmission Date: 20140711
  Serious: No
  Sender: FDA-Public Use
  Company Number: US-PFIZER INC-2012242805

PATIENT
  Age: 47 Year
  Sex: Female
  Weight: 61.22 kg

DRUGS (7)
  1. LYRICA [Suspect]
     Indication: FIBROMYALGIA
     Dosage: 150 MG, 3X/DAY
     Route: 048
     Dates: start: 20111118
  2. LYRICA [Suspect]
     Indication: NEUROPATHY PERIPHERAL
     Dosage: 150 MG, 3X/DAY
     Route: 048
     Dates: start: 201201
  3. LYRICA [Suspect]
     Dosage: 150 MG, 3X/DAY
     Route: 048
     Dates: start: 201204
  4. PROZAC [Concomitant]
     Indication: DEPRESSION
     Dosage: 50 MG, 2X/DAY
  5. TRAZODONE [Concomitant]
     Indication: DEPRESSION
     Dosage: 150 MG DAILY AT NIGHT
     Dates: start: 2011
  6. TRAZODONE [Concomitant]
     Indication: INSOMNIA
  7. FIORICET [Concomitant]
     Indication: HEADACHE
     Dosage: UNK
     Dates: start: 2011, end: 201311

REACTIONS (1)
  - Drug ineffective [Recovering/Resolving]
